FAERS Safety Report 23659507 (Version 1)
Quarter: 2024Q1

REPORT INFORMATION
  Report Type: Spontaneous
  Country: CN (occurrence: CN)
  Receive Date: 20240321
  Receipt Date: 20240321
  Transmission Date: 20240410
  Serious: Yes (Other)
  Sender: FDA-Public Use
  Company Number: CN-MEITHEAL-2024MPLIT00060

PATIENT
  Age: 53 Year
  Sex: Female

DRUGS (7)
  1. CARBOPLATIN [Suspect]
     Active Substance: CARBOPLATIN
     Indication: Lung adenocarcinoma stage III
     Dosage: FOUR CYCLES
     Route: 065
  2. PEMETREXED [Suspect]
     Active Substance: PEMETREXED
     Indication: Lung adenocarcinoma stage III
     Dosage: FOUR CYCLES
     Route: 065
  3. BEVACIZUMAB [Suspect]
     Active Substance: BEVACIZUMAB
     Indication: Lung adenocarcinoma stage III
     Dosage: FOUR CYCLES
     Route: 065
  4. GEFITINIB [Suspect]
     Active Substance: GEFITINIB
     Indication: Lung adenocarcinoma stage III
     Route: 065
  5. SINTILIMAB [Concomitant]
     Active Substance: SINTILIMAB
     Indication: Lung adenocarcinoma stage III
     Route: 065
  6. OSIMERTINIB [Concomitant]
     Active Substance: OSIMERTINIB
     Indication: Lung adenocarcinoma stage III
     Route: 065
  7. duvalizumab [Concomitant]
     Indication: Lung adenocarcinoma stage III
     Route: 065

REACTIONS (5)
  - Urinary retention [Unknown]
  - Gamma-glutamyltransferase increased [Unknown]
  - Vomiting [Unknown]
  - Hypersensitivity [Unknown]
  - Drug ineffective [Unknown]
